FAERS Safety Report 14046438 (Version 1)
Quarter: 2017Q4

REPORT INFORMATION
  Report Type: Spontaneous
  Country: US (occurrence: US)
  Receive Date: 20171005
  Receipt Date: 20171005
  Transmission Date: 20180321
  Serious: Yes (Other)
  Sender: FDA-Public Use
  Company Number: US-AMGEN-USASP2017148594

PATIENT
  Age: 72 Year
  Sex: Female

DRUGS (9)
  1. PEGFILGRASTIM [Suspect]
     Active Substance: PEGFILGRASTIM
     Dosage: 6 MG, 2 IN 21 D
     Route: 058
     Dates: start: 20120821
  2. CYCLOPHOSPHAMIDE. [Suspect]
     Active Substance: CYCLOPHOSPHAMIDE
     Indication: CHRONIC LYMPHOCYTIC LEUKAEMIA
     Dosage: 600 MG/M2, Q3WK (1 IN 21 D)
     Route: 042
     Dates: start: 20120604, end: 20120808
  3. BEVACIZUMAB. [Suspect]
     Active Substance: BEVACIZUMAB
     Indication: CHRONIC LYMPHOCYTIC LEUKAEMIA
     Dosage: UNK
     Route: 065
  4. PENTOSTATIN. [Suspect]
     Active Substance: PENTOSTATIN
     Dosage: 2 MG/M2, Q3WK (1 IN 21 D)
     Route: 042
     Dates: start: 20120820
  5. PENTOSTATIN. [Suspect]
     Active Substance: PENTOSTATIN
     Indication: CHRONIC LYMPHOCYTIC LEUKAEMIA
     Dosage: 2 MG/M2, Q3WK (1 IN 21 D)
     Route: 042
     Dates: start: 20120604, end: 20120806
  6. PEGFILGRASTIM [Suspect]
     Active Substance: PEGFILGRASTIM
     Indication: CHRONIC LYMPHOCYTIC LEUKAEMIA
     Dosage: 6 MG, 2 IN 21 D
     Route: 058
     Dates: start: 20120605, end: 20120807
  7. RITUXIMAB. [Suspect]
     Active Substance: RITUXIMAB
     Dosage: 375 MG/M2, Q3WK (1 IN 21 D)
     Route: 042
     Dates: start: 20120820
  8. CYCLOPHOSPHAMIDE. [Suspect]
     Active Substance: CYCLOPHOSPHAMIDE
     Dosage: 600 MG/M2, Q3WK (1 IN 21 D)
     Route: 042
     Dates: start: 20120820
  9. RITUXIMAB. [Suspect]
     Active Substance: RITUXIMAB
     Indication: CHRONIC LYMPHOCYTIC LEUKAEMIA
     Dosage: 375 MG/M2, Q3WK (1 IN 21 D)
     Route: 042
     Dates: start: 20120604, end: 20120806

REACTIONS (2)
  - Neutrophil count decreased [Recovered/Resolved]
  - Hypertension [Recovered/Resolved]

NARRATIVE: CASE EVENT DATE: 20120813
